FAERS Safety Report 4300721-5 (Version None)
Quarter: 2004Q1

REPORT INFORMATION
  Report Type: 
  Country: None (occurrence: None)
  Receive Date: 20040217
  Receipt Date: 20040202
  Transmission Date: 20041129
  Serious: Yes (Disabling)
  Sender: FDA-Public Use
  Company Number: 204502

PATIENT
  Age: 76 Year
  Sex: Male
  Weight: 49 kg

DRUGS (3)
  1. RITUXAN [Suspect]
     Indication: NON-HODGKIN'S LYMPHOMA
     Dosage: 530 MG, 1/WEEK, INTRAVENOUS
     Route: 042
     Dates: start: 20031019, end: 20031023
  2. ETOPOSIDE [Concomitant]
  3. MITOXANTRONE [Concomitant]

REACTIONS (1)
  - OPTIC NEURITIS RETROBULBAR [None]
